FAERS Safety Report 15570661 (Version 1)
Quarter: 2018Q4

REPORT INFORMATION
  Report Type: Spontaneous
  Country: FR (occurrence: FR)
  Receive Date: 20181031
  Receipt Date: 20181031
  Transmission Date: 20190205
  Serious: Yes (Life-Threatening, Hospitalization, Other)
  Sender: FDA-Public Use
  Company Number: PHHY2018FR142003

PATIENT
  Age: 4 Year
  Sex: Male
  Weight: 18 kg

DRUGS (5)
  1. BRONCHOKOD [Suspect]
     Active Substance: CARBOCYSTEINE
     Indication: NASOPHARYNGITIS
     Dosage: UNK UNK,UNK
     Route: 048
     Dates: start: 20011210, end: 20011217
  2. ISOFRA [Suspect]
     Active Substance: FRAMYCETIN SULFATE
     Indication: NASOPHARYNGITIS
     Dosage: UNK UNK,UNK
     Route: 045
     Dates: start: 20011210, end: 20011217
  3. CLARITHROMYCIN. [Suspect]
     Active Substance: CLARITHROMYCIN
     Indication: NASOPHARYNGITIS
     Dosage: UNK UNK,UNK
     Route: 048
     Dates: start: 20011210, end: 20011217
  4. ZADITEN [Suspect]
     Active Substance: KETOTIFEN FUMARATE
     Indication: NASOPHARYNGITIS
     Dosage: UNK UNK,UNK
     Route: 048
     Dates: start: 20011210, end: 20011217
  5. DOLIPRANE [Concomitant]
     Active Substance: ACETAMINOPHEN
     Indication: PRODUCT USED FOR UNKNOWN INDICATION
     Dosage: UNK UNK,UNK
     Route: 048
     Dates: start: 20011210, end: 20011217

REACTIONS (13)
  - Skin exfoliation [Recovered/Resolved]
  - Acute respiratory distress syndrome [Recovered/Resolved]
  - Rash [Recovered/Resolved]
  - Conjunctivitis [Recovered/Resolved]
  - Decreased appetite [Recovered/Resolved]
  - Pyrexia [Recovered/Resolved]
  - Hepatocellular injury [Recovered/Resolved]
  - Dyspnoea [Recovered/Resolved]
  - Vomiting [Recovered/Resolved]
  - Toxic epidermal necrolysis [Recovered/Resolved]
  - Mucosal ulceration [Recovered/Resolved]
  - Dermatitis bullous [Recovered/Resolved]
  - Leukopenia [Recovered/Resolved]

NARRATIVE: CASE EVENT DATE: 20011223
